FAERS Safety Report 8111497-8 (Version None)
Quarter: 2012Q1

REPORT INFORMATION
  Report Type: 
  Country: None (occurrence: None)
  Receive Date: 20120203
  Receipt Date: 20120127
  Transmission Date: 20120608
  Serious: Yes (Death, Life-Threatening, Hospitalization, Other)
  Sender: FDA-Public Use
  Company Number: JP-CELGENEUS-087-21660-11101835

PATIENT
  Sex: Female
  Weight: 63 kg

DRUGS (5)
  1. GISHA-JINKI-GAN [Concomitant]
     Route: 048
     Dates: start: 20110214, end: 20110306
  2. ABRAXANE [Suspect]
     Indication: BREAST CANCER
     Dosage: 400 MILLIGRAM
     Route: 041
     Dates: start: 20110124, end: 20110328
  3. ABRAXANE [Suspect]
     Route: 041
     Dates: start: 20110627, end: 20110710
  4. ABRAXANE [Suspect]
     Dosage: 390 MILLIGRAM
     Route: 041
     Dates: start: 20110606, end: 20110627
  5. LYRICA [Suspect]
     Route: 048
     Dates: start: 20110307, end: 20110710

REACTIONS (3)
  - STOMATITIS [None]
  - HEPATIC FUNCTION ABNORMAL [None]
  - BREAST CANCER [None]
